FAERS Safety Report 5334131-9 (Version None)
Quarter: 2007Q2

REPORT INFORMATION
  Report Type: 
  Country: None (occurrence: None)
  Receive Date: 20070525
  Receipt Date: 20070521
  Transmission Date: 20071010
  Serious: Yes (Hospitalization)
  Sender: FDA-Public Use
  Company Number: CHWYE689521MAY07

PATIENT
  Age: 23 Year
  Sex: Female
  Weight: 49 kg

DRUGS (5)
  1. EFFEXOR [Suspect]
     Dosage: 75 MG PER DAY
     Route: 048
     Dates: start: 20070323, end: 20070326
  2. EFFEXOR [Interacting]
     Dosage: 150 MG PER DAY
     Route: 048
     Dates: start: 20070327
  3. LORAZEPAM [Interacting]
     Dosage: 2 MG PER DAY
     Route: 048
     Dates: start: 20070319, end: 20070417
  4. SEROQUEL [Interacting]
     Dosage: 50 MG PER DAY
     Route: 048
     Dates: start: 20070319
  5. REMERON [Interacting]
     Dosage: 15 MG PER DAY
     Route: 048
     Dates: start: 20070316

REACTIONS (5)
  - CONCUSSION [None]
  - CRUSH INJURY [None]
  - DRUG INTERACTION [None]
  - FALL [None]
  - ORTHOSTATIC HYPOTENSION [None]
